FAERS Safety Report 19264765 (Version 2)
Quarter: 2021Q2

REPORT INFORMATION
  Report Type: Report from Study
  Country: None (occurrence: ES)
  Receive Date: 20210517
  Receipt Date: 20210603
  Transmission Date: 20210717
  Serious: Yes (Hospitalization, Other)
  Sender: FDA-Public Use
  Company Number: ES-ABBVIE-21K-144-3904043-00

PATIENT
  Age: 67 Year
  Sex: Female

DRUGS (13)
  1. AZATHIOPRINE. [Suspect]
     Active Substance: AZATHIOPRINE
     Route: 048
     Dates: start: 20141217, end: 20150626
  2. VORTIOXETINE. [Concomitant]
     Active Substance: VORTIOXETINE
     Indication: DEPRESSION
     Route: 048
     Dates: start: 20171004
  3. AZATHIOPRINE. [Suspect]
     Active Substance: AZATHIOPRINE
     Indication: COLITIS ULCERATIVE
     Route: 048
     Dates: start: 20070704, end: 20140625
  4. AZATHIOPRINE. [Suspect]
     Active Substance: AZATHIOPRINE
     Route: 048
     Dates: start: 20150627, end: 20150925
  5. METFORMIN HYDROCHLORIDE;SITAGLIPTIN [Concomitant]
     Indication: DIABETES MELLITUS
     Dosage: 50/1000 MILLIGRAM
     Route: 048
     Dates: start: 2007
  6. ASPIRIN. [Concomitant]
     Active Substance: ASPIRIN
     Indication: COLITIS ULCERATIVE
     Route: 061
     Dates: start: 20030711
  7. KETAZOLAM [Concomitant]
     Active Substance: KETAZOLAM
     Indication: DEPRESSION
     Route: 048
     Dates: start: 20171004
  8. LEVOTHYROXINE SODIUM. [Concomitant]
     Active Substance: LEVOTHYROXINE SODIUM
     Indication: HYPOTHYROIDISM
     Route: 048
     Dates: start: 2003
  9. VEDOLIZUMAB [Concomitant]
     Active Substance: VEDOLIZUMAB
     Indication: COLITIS ULCERATIVE
     Route: 041
     Dates: start: 20160720, end: 20180411
  10. HUMIRA [Suspect]
     Active Substance: ADALIMUMAB
     Indication: COLITIS ULCERATIVE
     Route: 058
     Dates: start: 20140703, end: 20160714
  11. ASPIRIN. [Concomitant]
     Active Substance: ASPIRIN
     Route: 048
     Dates: start: 20100210
  12. FERROUS SULFATE. [Concomitant]
     Active Substance: FERROUS SULFATE
     Indication: IRON DEFICIENCY
     Route: 048
     Dates: start: 20141217
  13. VEDOLIZUMAB [Concomitant]
     Active Substance: VEDOLIZUMAB
     Route: 041
     Dates: start: 20180418

REACTIONS (1)
  - Rectal dysplasia [Recovered/Resolved]

NARRATIVE: CASE EVENT DATE: 20210506
